FAERS Safety Report 8484570-2 (Version None)
Quarter: 2012Q3

REPORT INFORMATION
  Report Type: 
  Country: None (occurrence: None)
  Receive Date: 20120703
  Receipt Date: 20120323
  Transmission Date: 20120928
  Serious: No
  Sender: FDA-Public Use
  Company Number: US-TEVA-2011005972

PATIENT
  Age: 75 Year
  Sex: Male

DRUGS (2)
  1. NUVIGIL [Suspect]
     Indication: SLEEP APNOEA SYNDROME
     Dosage: 150 MILLIGRAM;
     Route: 048
     Dates: start: 20090101
  2. NUVIGIL [Suspect]
     Dosage: 3-4 DAYS PER WEEK
     Route: 048

REACTIONS (2)
  - DRUG TOLERANCE [None]
  - PALPITATIONS [None]
